FAERS Safety Report 5141770-7 (Version None)
Quarter: 2006Q4

REPORT INFORMATION
  Report Type: 
  Country: None (occurrence: None)
  Receive Date: 20061027
  Receipt Date: 20061010
  Transmission Date: 20070319
  Serious: No
  Sender: FDA-Public Use
  Company Number: FR200606002106

PATIENT
  Sex: Female

DRUGS (1)
  1. SOMATROPIN (SOMATROPIN) VIAL [Suspect]

REACTIONS (2)
  - GASTROINTESTINAL DYSPLASIA [None]
  - POLYP COLORECTAL [None]
